FAERS Safety Report 5314739-7 (Version None)
Quarter: 2007Q2

REPORT INFORMATION
  Report Type: 
  Country: None (occurrence: None)
  Receive Date: 20070427
  Receipt Date: 20070331
  Transmission Date: 20071010
  Serious: Yes (Other)
  Sender: FDA-Public Use
  Company Number: 20050042USST

PATIENT
  Age: 7 Year
  Sex: Male

DRUGS (1)
  1. CARNITOR [Suspect]

REACTIONS (4)
  - FURUNCLE [None]
  - GASTROINTESTINAL DISORDER [None]
  - HYPERSENSITIVITY [None]
  - ORAL MUCOSAL DISORDER [None]
